FAERS Safety Report 7726984-1 (Version None)
Quarter: 2011Q3

REPORT INFORMATION
  Report Type: 
  Country: None (occurrence: None)
  Receive Date: 20110902
  Receipt Date: 20110826
  Transmission Date: 20111222
  Serious: Yes (Disabling, Other)
  Sender: FDA-Public Use
  Company Number: AU-PFIZER INC-2010055029

PATIENT
  Age: 64 Year
  Sex: Male
  Weight: 55 kg

DRUGS (6)
  1. VFEND [Suspect]
     Dosage: 100 MG, 2X/DAY
     Route: 048
     Dates: start: 20100116, end: 20100309
  2. VFEND [Suspect]
     Dosage: 100 MG, 2X/DAY
     Route: 048
     Dates: start: 20100324, end: 20100412
  3. PANTOPRAZOLE [Concomitant]
     Dosage: 40 MG, 2X/DAY
     Route: 048
  4. VFEND [Suspect]
     Dosage: 150 MG, 2X/DAY
     Route: 048
     Dates: start: 20100310, end: 20100323
  5. LERCANIDIPINE [Concomitant]
     Dosage: 10 MG, 1X/DAY
     Route: 048
  6. VFEND [Suspect]
     Indication: SCEDOSPORIUM INFECTION
     Dosage: 200 MG, 2X/DAY
     Route: 042
     Dates: start: 20091103, end: 20100115

REACTIONS (5)
  - MUSCULAR WEAKNESS [None]
  - PAIN [None]
  - ABASIA [None]
  - LIVER FUNCTION TEST ABNORMAL [None]
  - MYALGIA [None]
